FAERS Safety Report 18724591 (Version 1)
Quarter: 2021Q1

REPORT INFORMATION
  Report Type: Report from Study
  Country: GB (occurrence: GB)
  Receive Date: 20210111
  Receipt Date: 20210111
  Transmission Date: 20210419
  Serious: Yes (Other)
  Sender: FDA-Public Use
  Company Number: GB-SAMSUNG BIOEPIS-SB-2020-38354

PATIENT
  Age: 49 Year
  Sex: Female

DRUGS (2)
  1. ALIROCUMAB [Suspect]
     Active Substance: ALIROCUMAB
     Indication: PRODUCT USED FOR UNKNOWN INDICATION
     Route: 065
  2. BENEPALI [Suspect]
     Active Substance: ETANERCEPT
     Indication: RHEUMATOID ARTHRITIS
     Route: 058
     Dates: start: 20190220

REACTIONS (9)
  - Vomiting [Unknown]
  - Hypertension [Unknown]
  - Wrong product administered [Unknown]
  - Rheumatoid arthritis [Unknown]
  - Urticaria [Unknown]
  - Pruritus [Unknown]
  - Pyrexia [Unknown]
  - Product dispensing error [Unknown]
  - Lower respiratory tract infection [Unknown]
